FAERS Safety Report 5827272-0 (Version None)
Quarter: 2008Q3

REPORT INFORMATION
  Report Type: 
  Country: None (occurrence: None)
  Receive Date: 20080724
  Receipt Date: 20080709
  Transmission Date: 20090109
  Serious: Yes (Disabling)
  Sender: FDA-Public Use
  Company Number: TUK2008A00069

PATIENT
  Age: 49 Year
  Sex: Female

DRUGS (8)
  1. ACTOS [Suspect]
     Indication: DIABETES MELLITUS
     Dosage: 15 MG ORAL
     Route: 048
     Dates: start: 20050321, end: 20080626
  2. AMLODIPINE [Concomitant]
  3. ATORVASTATIN CALCIUM [Concomitant]
  4. FUROSEMIDE [Concomitant]
  5. INSULATARD NPH HUMAN [Concomitant]
  6. LOSARTAN POTASSIUM [Concomitant]
  7. METFORMIN HCL [Concomitant]
  8. SNO TEARS (POLYVINYL ALCOHOL) [Concomitant]

REACTIONS (3)
  - FALL [None]
  - LUMBAR VERTEBRAL FRACTURE [None]
  - THORACIC VERTEBRAL FRACTURE [None]
